FAERS Safety Report 4931986-4 (Version None)
Quarter: 2006Q1

REPORT INFORMATION
  Report Type: 
  Country: None (occurrence: None)
  Receive Date: 20060303
  Receipt Date: 20060301
  Transmission Date: 20060701
  Serious: Yes (Hospitalization)
  Sender: FDA-Public Use
  Company Number: MX-GLAXOSMITHKLINE-A0595926A

PATIENT
  Age: 49 Year
  Sex: Female

DRUGS (4)
  1. AROPAX [Suspect]
     Indication: DEPRESSION
     Route: 048
     Dates: start: 20060227
  2. EUTIROX [Concomitant]
     Dosage: 50MG PER DAY
  3. LEXOTAN [Concomitant]
     Dosage: .5TAB PER DAY
  4. OVESTIN [Concomitant]
     Dosage: 1TAB PER DAY

REACTIONS (7)
  - ANXIETY [None]
  - DIARRHOEA [None]
  - DIZZINESS [None]
  - FEAR [None]
  - FEELING DRUNK [None]
  - HEADACHE [None]
  - NAUSEA [None]
